FAERS Safety Report 16465527 (Version 1)
Quarter: 2019Q2

REPORT INFORMATION
  Report Type: Spontaneous
  Country: US (occurrence: US)
  Receive Date: 20190621
  Receipt Date: 20190621
  Transmission Date: 20190711
  Serious: No
  Sender: FDA-Public Use
  Company Number: US-EGALET US INC-US-2018EGA000583

PATIENT

DRUGS (4)
  1. SPRIX [Suspect]
     Active Substance: KETOROLAC TROMETHAMINE
     Indication: EPICONDYLITIS
  2. SPRIX [Suspect]
     Active Substance: KETOROLAC TROMETHAMINE
     Indication: ARTHRITIS
  3. SPRIX [Suspect]
     Active Substance: KETOROLAC TROMETHAMINE
     Indication: FIBROMYALGIA
     Dosage: 2 SPRAYS IN 1 DAY SOMETIMES IN BOTH NOSTRILS, SOMETIMES JUST 1 NOSTRIL
     Route: 045
     Dates: start: 201807
  4. SPRIX [Suspect]
     Active Substance: KETOROLAC TROMETHAMINE
     Indication: TENDONITIS

REACTIONS (2)
  - Hypoacusis [Unknown]
  - Ear congestion [Unknown]

NARRATIVE: CASE EVENT DATE: 2018
